FAERS Safety Report 7661538 (Version 4)
Quarter: 2012Q4

REPORT INFORMATION
  Report Type: Report from Study
  Country: DE (occurrence: DE)
  Receive Date: 20101109
  Receipt Date: 20121205
  Transmission Date: 20130627
  Serious: Yes (Hospitalization)
  Sender: FDA-Public Use
  Company Number: PHHO2010DE16316

PATIENT
  Sex: Male

DRUGS (5)
  1. MYFORTIC [Suspect]
     Indication: RENAL TRANSPLANT
     Dosage: 2060 mg, BID
     Route: 048
     Dates: start: 20100815, end: 20100827
  2. MYFORTIC [Suspect]
     Dosage: UNK
     Route: 048
     Dates: start: 20100901
  3. NO TREATMENT RECEIVED [Suspect]
     Indication: RENAL TRANSPLANT
     Dosage: UNK
  4. SANDIMMUNE [Concomitant]
     Indication: RENAL TRANSPLANT
     Dosage: 200 mg, BID
     Route: 048
     Dates: start: 20100807
  5. PREDNISONE [Concomitant]
     Indication: RENAL TRANSPLANT
     Dosage: 10 mg, BID
     Route: 048
     Dates: start: 20100825

REACTIONS (4)
  - Cholecystitis [Not Recovered/Not Resolved]
  - Ocular icterus [Not Recovered/Not Resolved]
  - Cholestasis [Not Recovered/Not Resolved]
  - Seroma [Recovered/Resolved]
